FAERS Safety Report 15075837 (Version 4)
Quarter: 2018Q3

REPORT INFORMATION
  Report Type: Report from Study
  Country: US (occurrence: US)
  Receive Date: 20180627
  Receipt Date: 20180929
  Transmission Date: 20181010
  Serious: No
  Sender: FDA-Public Use
  Company Number: US-SA-2018SA170333

PATIENT
  Age: 49 Year
  Sex: Female

DRUGS (2)
  1. DUPILUMAB [Suspect]
     Active Substance: DUPILUMAB
     Dosage: 300 MG, QOW
     Route: 058
  2. DUPILUMAB [Suspect]
     Active Substance: DUPILUMAB
     Indication: DERMATITIS ATOPIC
     Dosage: 300 MG, QOW
     Route: 058
     Dates: start: 20180515

REACTIONS (19)
  - Stomatitis [Unknown]
  - Rash [Recovered/Resolved]
  - Blepharospasm [Unknown]
  - Tongue coated [Unknown]
  - Tongue discolouration [Unknown]
  - Fatigue [Recovering/Resolving]
  - Dizziness [Unknown]
  - Dry eye [Unknown]
  - Trichoglossia [Unknown]
  - Oropharyngeal pain [Unknown]
  - Erythema [Recovered/Resolved]
  - Cough [Recovered/Resolved]
  - Dyspnoea [Recovering/Resolving]
  - Tenderness [Recovered/Resolved]
  - Sinus congestion [Recovering/Resolving]
  - Mouth ulceration [Recovered/Resolved]
  - Pruritus [Recovered/Resolved]
  - Endodontic procedure [Unknown]
  - Feeling abnormal [Unknown]

NARRATIVE: CASE EVENT DATE: 201805
